FAERS Safety Report 9176068 (Version 1)
Quarter: 2013Q1

REPORT INFORMATION
  Report Type: Spontaneous
  Country: ES (occurrence: ES)
  Receive Date: 20130320
  Receipt Date: 20130320
  Transmission Date: 20140127
  Serious: Yes (Hospitalization, Other)
  Sender: FDA-Public Use
  Company Number: ES-ELI_LILLY_AND_COMPANY-ES201303005970

PATIENT
  Age: 69 None
  Sex: Male

DRUGS (2)
  1. FORSTEO [Suspect]
     Indication: OSTEOPOROSIS
     Dosage: 20 UG, UNKNOWN
     Route: 058
     Dates: start: 20080703
  2. CORTISONE [Concomitant]
     Dosage: UNK, UNKNOWN
     Route: 065

REACTIONS (3)
  - Respiratory disorder [Unknown]
  - Spinal compression fracture [Not Recovered/Not Resolved]
  - Pneumonia [Recovering/Resolving]
